FAERS Safety Report 19196222 (Version 3)
Quarter: 2022Q2

REPORT INFORMATION
  Report Type: Spontaneous
  Country: US (occurrence: None)
  Receive Date: 20210429
  Receipt Date: 20220601
  Transmission Date: 20220721
  Serious: Yes (Hospitalization, Other)
  Sender: FDA-Public Use
  Company Number: 2021A348930

PATIENT
  Weight: 135.6 kg

DRUGS (5)
  1. NEXIUM [Suspect]
     Active Substance: ESOMEPRAZOLE MAGNESIUM
     Indication: Gastrooesophageal reflux disease
     Route: 048
     Dates: start: 2003, end: 2018
  2. NEXIUM [Suspect]
     Active Substance: ESOMEPRAZOLE MAGNESIUM
     Indication: Product used for unknown indication
     Dosage: PROLONGED-RELEASE CAPSULE
     Route: 048
     Dates: start: 20170502
  3. NEXIUM [Suspect]
     Active Substance: ESOMEPRAZOLE MAGNESIUM
     Indication: Product used for unknown indication
     Dosage: PROLONGED-RELEASE CAPSULE
     Route: 048
  4. ESOMEPRAZOLE MAGNESIUM [Suspect]
     Active Substance: ESOMEPRAZOLE MAGNESIUM
     Indication: Gastrooesophageal reflux disease
     Dosage: GENERIC
     Route: 065
     Dates: start: 2016, end: 2017
  5. NEXIUM 24HR [Suspect]
     Active Substance: ESOMEPRAZOLE MAGNESIUM
     Indication: Gastrooesophageal reflux disease
     Route: 048
     Dates: start: 2014, end: 2018

REACTIONS (21)
  - Chronic kidney disease [Not Recovered/Not Resolved]
  - Acute kidney injury [Not Recovered/Not Resolved]
  - Diabetic nephropathy [Unknown]
  - Renal failure [Unknown]
  - Hydronephrosis [Unknown]
  - Urogenital disorder [Unknown]
  - Nephrolithiasis [Unknown]
  - Renal colic [Unknown]
  - Pyelonephritis [Unknown]
  - Nephrogenic anaemia [Unknown]
  - Urinary tract obstruction [Unknown]
  - Dysuria [Unknown]
  - Pollakiuria [Unknown]
  - Micturition urgency [Unknown]
  - Chromaturia [Unknown]
  - Haematuria [Unknown]
  - Ureteral stent insertion [Unknown]
  - Renal pain [Unknown]
  - Renal cyst [Unknown]
  - Nephropathy [Unknown]
  - Ureterolithiasis [Unknown]

NARRATIVE: CASE EVENT DATE: 20161103
